FAERS Safety Report 4536806-8 (Version None)
Quarter: 2004Q4

REPORT INFORMATION
  Report Type: 
  Country: None (occurrence: None)
  Receive Date: 20041220
  Receipt Date: 20041215
  Transmission Date: 20050328
  Serious: Yes (Other)
  Sender: FDA-Public Use
  Company Number: DE-2004-035724

PATIENT
  Age: 37 Year
  Sex: Male

DRUGS (3)
  1. MAGNEVIST [Suspect]
     Indication: ANGIOGRAM
     Dosage: SEE IMAGE
     Dates: start: 20041029, end: 20041029
  2. MAGNEVIST [Suspect]
     Indication: ANGIOGRAM
     Dosage: SEE IMAGE
     Dates: start: 20041119, end: 20041119
  3. CONTRAST MEDIA ( CONTRAST MEDIA) [Suspect]
     Indication: COMPUTERISED TOMOGRAM
     Dates: start: 20041029

REACTIONS (13)
  - ALANINE AMINOTRANSFERASE INCREASED [None]
  - ANTI-PLATELET ANTIBODY POSITIVE [None]
  - ASPARTATE AMINOTRANSFERASE INCREASED [None]
  - AUTOIMMUNE THROMBOCYTOPENIA [None]
  - BLOOD LACTATE DEHYDROGENASE INCREASED [None]
  - C-REACTIVE PROTEIN INCREASED [None]
  - CONTRAST MEDIA REACTION [None]
  - DIARRHOEA [None]
  - GAMMA-GLUTAMYLTRANSFERASE INCREASED [None]
  - HYPERTENSIVE CRISIS [None]
  - LABORATORY TEST ABNORMAL [None]
  - PYREXIA [None]
  - RENAL FAILURE ACUTE [None]
